FAERS Safety Report 10179018 (Version 1)
Quarter: 2014Q2

REPORT INFORMATION
  Report Type: Spontaneous
  Country: US (occurrence: US)
  Receive Date: 20140519
  Receipt Date: 20140519
  Transmission Date: 20141212
  Serious: No
  Sender: FDA-Public Use
  Company Number: US-BIOGENIDEC-2014BI041571

PATIENT
  Age: 51 Year
  Sex: Female

DRUGS (4)
  1. TECFIDERA [Suspect]
     Indication: MULTIPLE SCLEROSIS
     Route: 048
     Dates: start: 20140325
  2. CITALOPRAM  HYDROBROMIDE [Concomitant]
  3. OXYBUTININ CHLORIDE [Concomitant]
  4. ALEVE [Concomitant]

REACTIONS (3)
  - Fatigue [Unknown]
  - Urticaria [Not Recovered/Not Resolved]
  - Flushing [Not Recovered/Not Resolved]
